FAERS Safety Report 20665453 (Version 2)
Quarter: 2022Q2

REPORT INFORMATION
  Report Type: Spontaneous
  Country: US (occurrence: US)
  Receive Date: 20220402
  Receipt Date: 20220620
  Transmission Date: 20220720
  Serious: No
  Sender: FDA-Public Use
  Company Number: US-BRISTOL-MYERS SQUIBB COMPANY-2022-012281

PATIENT
  Age: 80 Year
  Sex: Female

DRUGS (1)
  1. POMALYST [Suspect]
     Active Substance: POMALIDOMIDE
     Indication: Plasma cell myeloma
     Dosage: 4 MILLIGRAM
     Route: 048
     Dates: start: 20220119

REACTIONS (6)
  - Oropharyngeal pain [Unknown]
  - Fatigue [Unknown]
  - Dyspnoea [Unknown]
  - Visual impairment [Unknown]
  - Nausea [Unknown]
  - Dysphonia [Unknown]

NARRATIVE: CASE EVENT DATE: 20220604
